FAERS Safety Report 7967074-2 (Version None)
Quarter: 2011Q4

REPORT INFORMATION
  Report Type: 
  Country: None (occurrence: None)
  Receive Date: 20111207
  Receipt Date: 20111207
  Transmission Date: 20120403
  Serious: Yes (Life-Threatening)
  Sender: FDA-Public Use
  Company Number: None

PATIENT
  Age: 85 Year
  Sex: Male
  Weight: 71.5 kg

DRUGS (1)
  1. VANCOMYCIN [Suspect]
     Indication: CELLULITIS
     Dosage: 1 GM ONCE IV
     Route: 042
     Dates: start: 20111206, end: 20111206

REACTIONS (3)
  - HYPOTENSION [None]
  - ANAPHYLACTIC REACTION [None]
  - ANGIOEDEMA [None]
